FAERS Safety Report 9792209 (Version 1)
Quarter: 2013Q4

REPORT INFORMATION
  Report Type: Spontaneous
  Country: US (occurrence: None)
  Receive Date: 20131230
  Receipt Date: 20131230
  Transmission Date: 20140711
  Serious: Yes (Hospitalization, Other)
  Sender: FDA-Public Use
  Company Number: 2010S1000485

PATIENT
  Age: 55 Year
  Sex: Female

DRUGS (3)
  1. FLEET PHOSPHO-SODA [Suspect]
     Indication: SURGERY
     Route: 048
     Dates: start: 20060921, end: 20060922
  2. ZOLOFT (SERTRALINE HYDROCHLORIDE) [Concomitant]
  3. PERCOCET [Concomitant]

REACTIONS (6)
  - Renal failure [None]
  - Normochromic normocytic anaemia [None]
  - Hydronephrosis [None]
  - Nephrogenic anaemia [None]
  - Renal atrophy [None]
  - Wound drainage [None]
